FAERS Safety Report 4692950-6 (Version None)
Quarter: 2005Q2

REPORT INFORMATION
  Report Type: 
  Country: None (occurrence: None)
  Receive Date: 20050617
  Receipt Date: 20050607
  Transmission Date: 20051028
  Serious: Yes (Hospitalization)
  Sender: FDA-Public Use
  Company Number: JP-ABBOTT-05P-087-0302788-00

PATIENT
  Sex: Male

DRUGS (9)
  1. KALETRA [Suspect]
     Indication: HIV INFECTION
     Route: 048
     Dates: start: 20040401, end: 20040604
  2. LAMIVUDINE [Suspect]
     Indication: HIV INFECTION
     Route: 048
     Dates: start: 20040401
  3. STAVUDINE [Suspect]
     Indication: HIV INFECTION
     Route: 048
     Dates: start: 20040401
  4. ATAZANAVIR [Suspect]
     Indication: HIV INFECTION
     Route: 048
     Dates: start: 20040605
  5. FENOFIBRATE [Concomitant]
     Indication: HYPERLIPIDAEMIA
     Route: 048
     Dates: start: 20040401
  6. PAROXETINE HYDROCHLORIDE [Concomitant]
     Indication: INSOMNIA
     Route: 048
     Dates: start: 20040401, end: 20040412
  7. ZOPICLONE [Concomitant]
     Indication: INSOMNIA
     Route: 048
     Dates: start: 20040401
  8. B-KOMPLEX ^LECIVA^ [Concomitant]
     Indication: HYPOVITAMINOSIS
     Route: 048
     Dates: start: 20040401
  9. ASCORBIC ACID/CALCIUM PANTOTHENATE [Concomitant]
     Indication: HYPOVITAMINOSIS
     Route: 048
     Dates: start: 20040401

REACTIONS (2)
  - CALCULUS URINARY [None]
  - RENAL IMPAIRMENT [None]
